FAERS Safety Report 21442341 (Version 1)
Quarter: 2022Q4

REPORT INFORMATION
  Report Type: Spontaneous
  Country: US (occurrence: None)
  Receive Date: 20221011
  Receipt Date: 20221011
  Transmission Date: 20230112
  Serious: No
  Sender: FDA-Public Use
  Company Number: 2022A335114

PATIENT
  Age: 47 Year
  Sex: Female
  Weight: 113.4 kg

DRUGS (1)
  1. SYMBICORT [Suspect]
     Active Substance: BUDESONIDE\FORMOTEROL FUMARATE DIHYDRATE
     Indication: Asthma
     Dosage: 80/4.5 MCG, 120 INHALATION INHALER, TWO PUFFS TWICE A DAY
     Route: 055
     Dates: start: 2017

REACTIONS (4)
  - Amnesia [Not Recovered/Not Resolved]
  - Product dose omission issue [Unknown]
  - Device issue [Recovered/Resolved]
  - Wrong technique in device usage process [Unknown]

NARRATIVE: CASE EVENT DATE: 20170101
